FAERS Safety Report 13655505 (Version 2)
Quarter: 2018Q4

REPORT INFORMATION
  Report Type: Spontaneous
  Country: US (occurrence: US)
  Receive Date: 20170615
  Receipt Date: 20181227
  Transmission Date: 20190204
  Serious: No
  Sender: FDA-Public Use
  Company Number: US-PFIZER INC-2017255677

PATIENT
  Age: 65 Year
  Sex: Female

DRUGS (5)
  1. AUGMENTIN [Suspect]
     Active Substance: AMOXICILLIN\CLAVULANATE POTASSIUM
     Dosage: UNK
  2. EFFEXOR XR [Suspect]
     Active Substance: VENLAFAXINE HYDROCHLORIDE
     Dosage: UNK
  3. TRAMADOL. [Suspect]
     Active Substance: TRAMADOL
     Dosage: UNK
  4. NUBAIN [Suspect]
     Active Substance: NALBUPHINE HYDROCHLORIDE
     Dosage: UNK
  5. HYDROCODONE [Suspect]
     Active Substance: HYDROCODONE
     Dosage: UNK

REACTIONS (2)
  - Pruritus [Unknown]
  - Drug hypersensitivity [Unknown]
